FAERS Safety Report 4688952-6 (Version None)
Quarter: 2005Q2

REPORT INFORMATION
  Report Type: 
  Country: None (occurrence: None)
  Receive Date: 20050613
  Receipt Date: 20040129
  Transmission Date: 20051028
  Serious: Yes (Hospitalization)
  Sender: FDA-Public Use
  Company Number: FR-MERCK-0401FRA00075

PATIENT
  Age: 69 Year
  Sex: Female
  Weight: 105 kg

DRUGS (5)
  1. VIOXX [Suspect]
     Indication: SHOULDER PAIN
     Route: 048
     Dates: start: 20031227, end: 20031229
  2. ACETAMINOPHEN [Concomitant]
     Indication: SHOULDER PAIN
     Route: 048
     Dates: start: 20031227, end: 20040106
  3. ACETAMINOPHEN [Concomitant]
     Route: 048
     Dates: start: 20030801, end: 20031226
  4. IRBESARTAN [Concomitant]
     Indication: HYPERTENSION
     Route: 048
     Dates: end: 20040101
  5. ZOPICLONE [Concomitant]
     Indication: INSOMNIA
     Route: 048
     Dates: end: 20040101

REACTIONS (2)
  - CYTOLYTIC HEPATITIS [None]
  - HEPATITIS CHOLESTATIC [None]
